FAERS Safety Report 9136675 (Version 1)
Quarter: 2013Q1

REPORT INFORMATION
  Report Type: Spontaneous
  Country: US (occurrence: US)
  Receive Date: 20130304
  Receipt Date: 20130304
  Transmission Date: 20140127
  Serious: No
  Sender: FDA-Public Use
  Company Number: US-ABBOTT-13P-163-1040075-00

PATIENT
  Sex: Male
  Weight: 88.53 kg

DRUGS (1)
  1. ANDROGEL [Suspect]
     Indication: BLOOD TESTOSTERONE DECREASED
     Dosage: ONE PUMP DAILY TOTAL
     Dates: start: 2011

REACTIONS (1)
  - Incorrect route of drug administration [Unknown]
